FAERS Safety Report 9284140 (Version 1)
Quarter: 2013Q2

REPORT INFORMATION
  Report Type: Spontaneous
  Country: US (occurrence: US)
  Receive Date: 20130510
  Receipt Date: 20130510
  Transmission Date: 20140414
  Serious: Yes (Hospitalization, Other)
  Sender: FDA-Public Use
  Company Number: CHPA2013US007642

PATIENT
  Age: 82 Year
  Sex: Female

DRUGS (11)
  1. MAALOX ADV MAXIMUM STRENGTH ANTACID/ANTIGAS [Suspect]
     Indication: DYSPEPSIA
     Dosage: 2 TO 4 TSP, BID
     Route: 048
  2. MAALOX ADV MAXIMUM STRENGTH ANTACID/ANTIGAS [Suspect]
     Indication: ABDOMINAL DISCOMFORT
     Dosage: UNK, UNK
     Route: 048
  3. MAALOX ADV MAXIMUM STRENGTH ANTACID/ANTIGAS [Suspect]
     Indication: FLATULENCE
  4. MAALOX ADV MAXIMUM STRENGTH ANTACID/ANTIGAS [Suspect]
     Indication: ABDOMINAL DISTENSION
  5. MAALOX ADV MAXIMUM STRENGTH ANTACID/ANTIGAS [Suspect]
     Indication: GASTRITIS
  6. MAALOX ANTACID/ANTIGAS RS LIQ SMTHCHERRY [Suspect]
     Indication: DYSPEPSIA
     Dosage: UNK, UNK
     Route: 048
  7. MAALOX ANTACID/ANTIGAS RS LIQ SMTHCHERRY [Suspect]
     Indication: ABDOMINAL DISCOMFORT
  8. MAALOX ANTACID/ANTIGAS RS LIQ SMTHCHERRY [Suspect]
     Indication: ABDOMINAL DISTENSION
  9. MAALOX ANTACID/ANTIGAS RS LIQ SMTHCHERRY [Suspect]
     Indication: FLATULENCE
  10. MAALOX ANTACID/ANTIGAS RS LIQ SMTHCHERRY [Suspect]
     Indication: GASTRITIS
  11. PREVACID [Concomitant]
     Indication: GASTROOESOPHAGEAL REFLUX DISEASE

REACTIONS (5)
  - Gastritis [Not Recovered/Not Resolved]
  - Rebound effect [Unknown]
  - Therapeutic response unexpected [Unknown]
  - Off label use [Unknown]
  - Wrong technique in drug usage process [Unknown]
